FAERS Safety Report 17327800 (Version 3)
Quarter: 2025Q3

REPORT INFORMATION
  Report Type: Spontaneous
  Country: EU (occurrence: EU)
  Receive Date: 20200127
  Receipt Date: 20250702
  Transmission Date: 20251021
  Serious: Yes (Other)
  Sender: MYLAN
  Company Number: EU-SA-2019SA318239

PATIENT
  Sex: Male

DRUGS (5)
  1. MYCOPHENOLATE MOFETIL [Suspect]
     Active Substance: MYCOPHENOLATE MOFETIL
     Indication: Immunosuppressant drug therapy
  2. FLUDARABINE [Suspect]
     Active Substance: FLUDARABINE PHOSPHATE
     Indication: Immunosuppressant drug therapy
  3. TREOSULFAN [Suspect]
     Active Substance: TREOSULFAN
     Indication: Bone marrow conditioning regimen
  4. THIOTEPA [Suspect]
     Active Substance: THIOTEPA
     Indication: Bone marrow conditioning regimen
  5. MUROMONAB-CD3 [Suspect]
     Active Substance: MUROMONAB-CD3
     Indication: Prophylaxis against graft versus host disease

REACTIONS (14)
  - Vitritis [Recovering/Resolving]
  - Visual field defect [Recovering/Resolving]
  - Visual impairment [Recovering/Resolving]
  - Visual acuity reduced [Recovering/Resolving]
  - Encephalitis cytomegalovirus [Unknown]
  - CNS ventriculitis [Unknown]
  - Retinal scar [Recovering/Resolving]
  - Retinal exudates [Recovering/Resolving]
  - Cytomegalovirus chorioretinitis [Unknown]
  - Retinal haemorrhage [Recovering/Resolving]
  - Vitreous floaters [Recovering/Resolving]
  - Varicella zoster virus infection [Unknown]
  - Human herpesvirus 6 infection [Unknown]
  - Encephalitis [Unknown]
